FAERS Safety Report 8371452-X (Version None)
Quarter: 2012Q2

REPORT INFORMATION
  Report Type: 
  Country: None (occurrence: None)
  Receive Date: 20120518
  Receipt Date: 20120511
  Transmission Date: 20120825
  Serious: No
  Sender: FDA-Public Use
  Company Number: US-B.I. PHARMACEUTICALS,INC./RIDGEFIELD-2012-BP-07289BP

PATIENT
  Sex: Male
  Weight: 75.3 kg

DRUGS (19)
  1. PRADAXA [Suspect]
     Dosage: 300 MG
     Route: 048
     Dates: start: 20120412
  2. DIGOXIN [Concomitant]
     Indication: ARRHYTHMIA
     Dosage: 0.125 MG
     Route: 048
     Dates: start: 20110101
  3. COQ10 [Concomitant]
     Indication: CARDIAC DISORDER
     Route: 048
  4. PROSCAR [Concomitant]
     Indication: PROSTATOMEGALY
     Dosage: 5 MG
     Route: 048
  5. FLOMAX [Concomitant]
     Indication: PROSTATOMEGALY
     Dosage: 0.4 MG
     Route: 048
     Dates: start: 20101101
  6. RANEXA [Concomitant]
     Indication: CORONARY ARTERY DISEASE
     Dosage: 1000 MG
     Dates: start: 19990101
  7. FISH OIL [Concomitant]
     Indication: PROPHYLAXIS
     Dosage: 1000 MG
     Route: 048
  8. LEVOTHYROXINE SODIUM [Concomitant]
     Indication: HYPOTHYROIDISM
     Dosage: 0.075 MG
     Route: 048
  9. LIPITOR [Concomitant]
     Indication: BLOOD CHOLESTEROL INCREASED
     Dosage: 10 MG
     Route: 048
     Dates: start: 19990101
  10. PRADAXA [Suspect]
     Indication: ATRIAL FIBRILLATION
     Dosage: 300 MG
     Route: 048
     Dates: end: 20120314
  11. BENEFIBER [Concomitant]
     Indication: CONSTIPATION
  12. MULTI-VITAMIN [Concomitant]
     Indication: PROPHYLAXIS
     Route: 048
  13. IMDUR [Concomitant]
     Indication: CORONARY ARTERY DISEASE
     Dosage: 1000 MG
     Dates: start: 20100101
  14. MAGNESIUM SULFATE [Suspect]
     Indication: CARDIAC DISORDER
     Dosage: 250 MG
     Route: 048
     Dates: start: 20120410
  15. COLACE [Concomitant]
     Indication: FAECES HARD
  16. COREG [Concomitant]
     Indication: CARDIAC DISORDER
     Dosage: 12.5 MG
     Route: 048
     Dates: start: 20090101
  17. ISOSORBIDE DINITRATE [Concomitant]
     Indication: CARDIAC DISORDER
     Dosage: 30 MG
     Route: 048
  18. VITAMIN D [Concomitant]
     Indication: PROPHYLAXIS
     Dosage: 6000 U
     Route: 048
  19. HYDROCHLOROTHIAZIDE [Concomitant]
     Dosage: 25 MG
     Route: 048

REACTIONS (4)
  - SENSATION OF HEAVINESS [None]
  - EPISTAXIS [None]
  - SCAB [None]
  - RASH PRURITIC [None]
